FAERS Safety Report 8777525 (Version 2)
Quarter: 2013Q4

REPORT INFORMATION
  Report Type: Spontaneous
  Country: US (occurrence: US)
  Receive Date: 20120910
  Receipt Date: 20131101
  Transmission Date: 20140711
  Serious: No
  Sender: FDA-Public Use
  Company Number: US-009507513-1208USA000990

PATIENT
  Age: 68 Year
  Sex: Female
  Weight: 86.17 kg

DRUGS (6)
  1. MIRALAX [Suspect]
     Indication: CONSTIPATION
     Dosage: 17 G, QD
     Route: 048
     Dates: start: 201206, end: 201207
  2. MIRALAX [Suspect]
     Indication: MEDICAL OBSERVATION
  3. SIMVASTATIN [Concomitant]
     Indication: BLOOD CHOLESTEROL
     Dosage: UNK, UNKNOWN
  4. LOSARTAN POTASSIUM [Concomitant]
     Indication: BLOOD PRESSURE
     Dosage: UNK, UNKNOWN
  5. PRILOSEC [Concomitant]
     Indication: GASTROOESOPHAGEAL REFLUX DISEASE
     Dosage: UNK, UNKNOWN
  6. ASPIRIN [Concomitant]
     Indication: PRODUCT USED FOR UNKNOWN INDICATION
     Dosage: UNK, UNKNOWN

REACTIONS (2)
  - Incorrect drug administration duration [Unknown]
  - Drug ineffective [Unknown]
